FAERS Safety Report 10090974 (Version 2)
Quarter: 2014Q2

REPORT INFORMATION
  Report Type: Spontaneous
  Country: US (occurrence: US)
  Receive Date: 20140421
  Receipt Date: 20140428
  Transmission Date: 20141212
  Serious: Yes (Death, Hospitalization, Other)
  Sender: FDA-Public Use
  Company Number: US-GILEAD-2014-0100308

PATIENT
  Age: 83 Year
  Sex: Female

DRUGS (2)
  1. LETAIRIS [Suspect]
     Indication: PRODUCT USED FOR UNKNOWN INDICATION
     Dosage: 10 MG, QD
     Route: 065
     Dates: start: 20110527
  2. LETAIRIS [Suspect]
     Dates: start: 20110531

REACTIONS (5)
  - Colon cancer [Unknown]
  - Pneumonia [Unknown]
  - Abasia [Unknown]
  - Cardiac failure congestive [Unknown]
  - Death [Fatal]
